FAERS Safety Report 7437737-6 (Version None)
Quarter: 2011Q2

REPORT INFORMATION
  Report Type: 
  Country: None (occurrence: None)
  Receive Date: 20110421
  Receipt Date: 20110421
  Transmission Date: 20111010
  Serious: Yes (Hospitalization)
  Sender: FDA-Public Use
  Company Number: None

PATIENT
  Age: 58 Year
  Sex: Male
  Weight: 131 kg

DRUGS (4)
  1. VANCOMYCIN [Suspect]
  2. VANCOMYCIN [Suspect]
     Indication: CELLULITIS
     Dosage: 1750 MG BID IV
     Route: 042
     Dates: start: 20101121, end: 20101205
  3. VANCOMYCIN [Suspect]
  4. VANCOMYCIN [Suspect]

REACTIONS (3)
  - RENAL FAILURE ACUTE [None]
  - DIALYSIS [None]
  - NEPHROPATHY TOXIC [None]
